FAERS Safety Report 23333117 (Version 1)
Quarter: 2023Q4

REPORT INFORMATION
  Report Type: Spontaneous
  Country: US (occurrence: US)
  Receive Date: 20231222
  Receipt Date: 20231222
  Transmission Date: 20240110
  Serious: No
  Sender: FDA-Public Use
  Company Number: US-CTI BIOPHARMA-2023US04118

PATIENT

DRUGS (11)
  1. VONJO [Suspect]
     Active Substance: PACRITINIB
     Indication: Essential thrombocythaemia
     Dosage: 200 MG, BID
     Route: 048
     Dates: start: 20230508
  2. ALEVE [Concomitant]
     Active Substance: NAPROXEN SODIUM
  3. ALLOPURINOL [Concomitant]
     Active Substance: ALLOPURINOL
  4. AMLODIPINE [Concomitant]
     Active Substance: AMLODIPINE BESYLATE
  5. CALCIUM [Concomitant]
     Active Substance: CALCIUM
  6. VITAMINS NOS [Concomitant]
     Active Substance: VITAMINS
  7. CITRUCEL [Concomitant]
     Active Substance: METHYLCELLULOSE (4000 CPS)\METHYLCELLULOSE (4000 MPA.S)
  8. COLCHICINE [Concomitant]
     Active Substance: COLCHICINE
  9. ESCITALOPRAM [Concomitant]
     Active Substance: ESCITALOPRAM OXALATE
  10. FERROUS SULFATE [Concomitant]
     Active Substance: FERROUS SULFATE
  11. HYDROCHLOROTHIAZIDE [Concomitant]
     Active Substance: HYDROCHLOROTHIAZIDE

REACTIONS (1)
  - Drug ineffective [Unknown]
